FAERS Safety Report 7041210-7 (Version None)
Quarter: 2010Q4

REPORT INFORMATION
  Report Type: 
  Country: None (occurrence: None)
  Receive Date: 20101013
  Receipt Date: 20101011
  Transmission Date: 20110411
  Serious: Yes (Hospitalization)
  Sender: FDA-Public Use
  Company Number: FR-BRISTOL-MYERS SQUIBB COMPANY-15302813

PATIENT
  Age: 25 Year
  Sex: Male
  Weight: 78 kg

DRUGS (3)
  1. ABILIFY [Suspect]
     Dates: start: 20100501, end: 20100701
  2. TERALITHE [Concomitant]
     Dosage: TERALITHE LP FOR:400MG TABS 1 DF:2 TABS
     Dates: start: 19940101, end: 20100701
  3. TRANXENE [Concomitant]
     Dosage: 3 TABS DAILY
     Dates: start: 20100701

REACTIONS (1)
  - PSYCHOTIC DISORDER [None]
